FAERS Safety Report 9691073 (Version 2)
Quarter: 2013Q4

REPORT INFORMATION
  Report Type: Spontaneous
  Country: US (occurrence: US)
  Receive Date: 20131115
  Receipt Date: 20131115
  Transmission Date: 20140711
  Serious: Yes (Hospitalization)
  Sender: FDA-Public Use
  Company Number: US-TMC-CABO-13002707

PATIENT
  Sex: 0

DRUGS (11)
  1. COMETRIQ [Suspect]
     Indication: PROSTATE CANCER
     Dosage: 100 MG, QD
     Route: 048
     Dates: start: 20130419, end: 20130430
  2. ZOCOR [Concomitant]
  3. ASA [Concomitant]
  4. CARVEDILOL [Concomitant]
  5. CHLORTHALIDONE [Concomitant]
  6. METFORMIN [Concomitant]
  7. MULTIVITAMIN [Concomitant]
  8. NOVOLOG [Concomitant]
  9. PLAVIX [Concomitant]
  10. PROTONIX [Concomitant]
  11. PREDNISONE ACETATE [Concomitant]

REACTIONS (6)
  - Malignant neoplasm progression [Unknown]
  - Syncope [Unknown]
  - Asthenia [Unknown]
  - Decreased appetite [Unknown]
  - Dysphonia [Unknown]
  - Off label use [Unknown]
